FAERS Safety Report 9412304 (Version 1)
Quarter: 2013Q3

REPORT INFORMATION
  Report Type: Spontaneous
  Country: FR (occurrence: FR)
  Receive Date: 20130722
  Receipt Date: 20130722
  Transmission Date: 20140515
  Serious: Yes (Hospitalization)
  Sender: FDA-Public Use
  Company Number: FR-SANOFI-AVENTIS-2013SA071384

PATIENT
  Age: 65 Year
  Sex: Male

DRUGS (5)
  1. RIFINAH [Suspect]
     Indication: PRODUCT USED FOR UNKNOWN INDICATION
     Route: 048
     Dates: start: 20130515, end: 20130606
  2. ATARAX [Concomitant]
  3. ONGLYZA [Concomitant]
  4. ENBREL [Concomitant]
  5. LOVENOX [Concomitant]

REACTIONS (2)
  - Psoriasis [Recovering/Resolving]
  - Pruritus [Recovering/Resolving]
